FAERS Safety Report 23706307 (Version 1)
Quarter: 2024Q2

REPORT INFORMATION
  Report Type: Spontaneous
  Country: GB (occurrence: GB)
  Receive Date: 20240404
  Receipt Date: 20240404
  Transmission Date: 20240715
  Serious: Yes (Other)
  Sender: FDA-Public Use
  Company Number: None

PATIENT
  Age: 68 Year
  Sex: Female
  Weight: 68 kg

DRUGS (14)
  1. DOXYCYCLINE [Suspect]
     Active Substance: DOXYCYCLINE
     Indication: Ill-defined disorder
     Dosage: UNK
     Route: 065
     Dates: start: 20240328
  2. BETAMETHASONE VALERATE [Concomitant]
     Active Substance: BETAMETHASONE VALERATE
     Indication: Ill-defined disorder
     Dosage: UNK, BID (APPLY TWICE DAILY FOR UP TO A WEEK)
     Route: 065
     Dates: start: 20240212, end: 20240219
  3. BETNOVATE [Concomitant]
     Active Substance: BETAMETHASONE
     Indication: Ill-defined disorder
     Dosage: UNK, BID (APPLY TWICE DAILY FOR UP TO A WEEK)
     Route: 065
     Dates: start: 20240212, end: 20240311
  4. CODEINE PHOSPHATE [Concomitant]
     Active Substance: CODEINE PHOSPHATE
     Indication: Ill-defined disorder
     Dosage: UNK, QID (ONE OR TWO TO BE TAKEN FOUR TIMES DAILY AS REQU)
     Route: 065
     Dates: start: 20230628
  5. DICLOFENAC DIETHYLAMINE [Concomitant]
     Active Substance: DICLOFENAC DIETHYLAMINE
     Indication: Ill-defined disorder
     Dosage: UNK UNK, BID (APPLY TWICE DAILY)
     Route: 065
     Dates: start: 20191111
  6. DOXYCYCLINE [Concomitant]
     Active Substance: DOXYCYCLINE
     Indication: Ill-defined disorder
     Dosage: 1 DOSAGE FORM, QD (TAKE ONE DAILY)
     Route: 065
     Dates: start: 20240321
  7. ESTRIOL [Concomitant]
     Active Substance: ESTRIOL
     Indication: Ill-defined disorder
     Dosage: APPLY AT NIGHT TWICE A WEEK
     Route: 065
     Dates: start: 20191111
  8. FUROSEMIDE [Concomitant]
     Active Substance: FUROSEMIDE
     Indication: Ill-defined disorder
     Dosage: 1 DOSAGE FORM, QD (TAKE ONE EACH MORNING)
     Route: 065
     Dates: start: 20191111
  9. FUSIDIC ACID [Concomitant]
     Active Substance: FUSIDIC ACID
     Indication: Ill-defined disorder
     Dosage: BID (ONE DROP TWICE DAILY IN EACH EYE)
     Route: 065
     Dates: start: 20240205, end: 20240210
  10. LANSOPRAZOLE [Concomitant]
     Active Substance: LANSOPRAZOLE
     Indication: Ill-defined disorder
     Dosage: 1 DOSAGE FORM, QD (TAKE ONE ONCE DAILY)
     Route: 065
     Dates: start: 20231204
  11. LIDOCAINE [Concomitant]
     Active Substance: LIDOCAINE
     Indication: Ill-defined disorder
     Dosage: UNK, BID (USE FOR 12 HOURS EACH DAY THEN REMOVE)
     Route: 065
     Dates: start: 20210524
  12. MOMETASONE [Concomitant]
     Active Substance: MOMETASONE
     Indication: Ill-defined disorder
     Dosage: UNK, QD (APPLY ONCE DAILY FOR UP TO A WEEK)
     Route: 065
     Dates: start: 20240212, end: 20240311
  13. NORTRIPTYLINE [Concomitant]
     Active Substance: NORTRIPTYLINE
     Indication: Ill-defined disorder
     Dosage: 1 DOSAGE FORM, QD (TAKE ONE AT NIGHT AS DIRECTED)
     Route: 065
     Dates: start: 20220509, end: 20240111
  14. ACETAMINOPHEN [Concomitant]
     Active Substance: ACETAMINOPHEN
     Indication: Ill-defined disorder
     Dosage: UNK, QID (TAKE 1 OR 2 4 TIMES/DAY AS NEEDED)
     Route: 065
     Dates: start: 20211012

REACTIONS (4)
  - Insomnia [Recovered/Resolved]
  - Vision blurred [Recovered/Resolved]
  - Tinnitus [Recovered/Resolved]
  - Headache [Recovered/Resolved]

NARRATIVE: CASE EVENT DATE: 20240328
